FAERS Safety Report 8240370-X (Version None)
Quarter: 2012Q1

REPORT INFORMATION
  Report Type: 
  Country: None (occurrence: None)
  Receive Date: 20120328
  Receipt Date: 20120322
  Transmission Date: 20120608
  Serious: Yes (Congenital Anomaly, Other)
  Sender: FDA-Public Use
  Company Number: US-PFIZER INC-2012075779

PATIENT
  Sex: Male
  Weight: 3 kg

DRUGS (3)
  1. MULTI-VITAMINS [Concomitant]
     Dosage: DAILY
     Route: 064
  2. ZOLOFT [Suspect]
     Dosage: UNK
     Route: 064
  3. SYNTHROID [Concomitant]
     Dosage: UNK
     Route: 064

REACTIONS (6)
  - ATRIAL SEPTAL DEFECT [None]
  - MATERNAL EXPOSURE TIMING UNSPECIFIED [None]
  - CIRCUMCISION [None]
  - OTITIS MEDIA ACUTE [None]
  - CONGENITAL HEART VALVE DISORDER [None]
  - JAUNDICE NEONATAL [None]
